FAERS Safety Report 5846083-3 (Version None)
Quarter: 2008Q3

REPORT INFORMATION
  Report Type: 
  Country: None (occurrence: None)
  Receive Date: 20080814
  Receipt Date: 20080805
  Transmission Date: 20090109
  Serious: Yes (Death)
  Sender: FDA-Public Use
  Company Number: IT-PFIZER INC-2008064543

PATIENT
  Sex: Female
  Weight: 64 kg

DRUGS (6)
  1. SU-011,248 [Suspect]
     Indication: BREAST CANCER
     Route: 048
  2. SU-011,248 [Suspect]
     Route: 048
  3. DOCETAXEL [Suspect]
     Indication: BREAST CANCER
     Route: 042
  4. DOCETAXEL [Suspect]
     Route: 042
  5. LOSAPREX [Concomitant]
     Indication: HYPERTENSION
     Dosage: DAILY DOSE:50MG
  6. NEULASTA [Concomitant]
     Indication: NEUTROPENIA

REACTIONS (1)
  - DEATH [None]
